FAERS Safety Report 7307348-1 (Version None)
Quarter: 2011Q1

REPORT INFORMATION
  Report Type: 
  Country: None (occurrence: None)
  Receive Date: 20110223
  Receipt Date: 20110215
  Transmission Date: 20110831
  Serious: Yes (Hospitalization, Other)
  Sender: FDA-Public Use
  Company Number: US-PFIZER INC-2010177461

PATIENT
  Sex: Male
  Weight: 125.99 kg

DRUGS (14)
  1. WARFARIN [Concomitant]
     Dosage: UNK
  2. SPIRIVA [Concomitant]
     Dosage: UNK
  3. ADVAIR [Concomitant]
     Dosage: UNK
  4. K-DUR [Concomitant]
     Dosage: UNK
  5. ALBUTEROL [Concomitant]
     Dosage: UNK
  6. BUMEX [Concomitant]
     Dosage: UNK
  7. PRILOSEC [Concomitant]
     Dosage: UNK
  8. TRACLEER [Suspect]
     Indication: PULMONARY ARTERIAL HYPERTENSION
     Dosage: 6.25 MG, 2X/DAY
     Route: 048
     Dates: start: 20100301
  9. TRACLEER [Suspect]
     Dosage: 125 MG, 2X/DAY
     Route: 048
     Dates: start: 20100401
  10. ALLOPURINOL [Concomitant]
     Dosage: UNK
  11. THEO-DUR [Concomitant]
     Dosage: UNK
  12. REVATIO [Suspect]
     Dosage: UNK
     Route: 048
     Dates: start: 20100610, end: 20100720
  13. OXYGEN [Concomitant]
     Dosage: UNK
  14. ZOCOR [Concomitant]
     Dosage: UNK

REACTIONS (4)
  - DYSPNOEA [None]
  - ABDOMINAL PAIN UPPER [None]
  - DIZZINESS [None]
  - OEDEMA PERIPHERAL [None]
